FAERS Safety Report 6912778-3 (Version None)
Quarter: 2010Q3

REPORT INFORMATION
  Report Type: 
  Country: None (occurrence: None)
  Receive Date: 20100806
  Receipt Date: 20081215
  Transmission Date: 20110219
  Serious: No
  Sender: FDA-Public Use
  Company Number: US-PFIZER INC-2008156274

PATIENT
  Sex: Female

DRUGS (2)
  1. DETROL LA [Suspect]
     Dosage: 4 MG, UNK
  2. DOXYCYCLINE [Concomitant]

REACTIONS (2)
  - BLADDER PAIN [None]
  - CYSTITIS [None]
